FAERS Safety Report 12194975 (Version 1)
Quarter: 2016Q1

REPORT INFORMATION
  Report Type: Spontaneous
  Country: US (occurrence: None)
  Receive Date: 20160318
  Receipt Date: 20160318
  Transmission Date: 20160526
  Serious: Yes (Other)
  Sender: FDA-Public Use
  Company Number: None

PATIENT
  Age: 81 Year
  Sex: Female
  Weight: 82 kg

DRUGS (1)
  1. PROTAMINE [Suspect]
     Active Substance: PROTAMINE
     Indication: SURGERY
     Dates: start: 20160314

REACTIONS (2)
  - Hypotension [None]
  - Thrombocytopenia [None]

NARRATIVE: CASE EVENT DATE: 20160314
